FAERS Safety Report 13771380 (Version 1)
Quarter: 2017Q3

REPORT INFORMATION
  Report Type: Spontaneous
  Country: US (occurrence: US)
  Receive Date: 20170720
  Receipt Date: 20170720
  Transmission Date: 20171127
  Serious: Yes (Other)
  Sender: FDA-Public Use
  Company Number: US-TEVA-788356ACC

PATIENT
  Age: 26 Year
  Sex: Female
  Weight: 154.36 kg

DRUGS (1)
  1. PARAGARD T 380A [Suspect]
     Active Substance: COPPER
     Indication: CONTRACEPTION
     Dates: start: 20170216

REACTIONS (7)
  - Device dislocation [Not Recovered/Not Resolved]
  - Blood glucose increased [Unknown]
  - Haematocrit decreased [Unknown]
  - Mean cell haemoglobin [Unknown]
  - Mean cell volume [Unknown]
  - Red cell distribution width increased [Unknown]
  - Haemoglobin decreased [Unknown]

NARRATIVE: CASE EVENT DATE: 20170621
